FAERS Safety Report 7680078-2 (Version None)
Quarter: 2011Q3

REPORT INFORMATION
  Report Type: 
  Country: None (occurrence: None)
  Receive Date: 20110812
  Receipt Date: 20110803
  Transmission Date: 20111222
  Serious: Yes (Hospitalization)
  Sender: FDA-Public Use
  Company Number: JP-ROCHE-784493

PATIENT
  Sex: Female
  Weight: 52 kg

DRUGS (8)
  1. TAMOXIFEN CITRATE [Suspect]
     Indication: BREAST CANCER METASTATIC
     Route: 048
     Dates: start: 20090804, end: 20091007
  2. TAMOXIFEN CITRATE [Suspect]
     Route: 048
     Dates: start: 20090101
  3. HERCEPTIN [Suspect]
     Dosage: NOTE: 11 TIMES
     Route: 041
     Dates: start: 20090929, end: 20100517
  4. TAMOXIFEN CITRATE [Suspect]
     Route: 048
     Dates: start: 20090101, end: 20090101
  5. HERCEPTIN [Suspect]
     Indication: BREAST CANCER METASTATIC
     Route: 041
     Dates: start: 20090330, end: 20090330
  6. HERCEPTIN [Suspect]
     Route: 041
     Dates: start: 20090831, end: 20090831
  7. HERCEPTIN [Suspect]
     Dosage: NOTE: 3 TIMES
     Route: 041
     Dates: start: 20090420, end: 20090601
  8. DOCETAXEL [Concomitant]
     Route: 041
     Dates: start: 20090330, end: 20090601

REACTIONS (4)
  - WOUND SECRETION [None]
  - RASH [None]
  - WOUND INFECTION [None]
  - LOWER RESPIRATORY TRACT INFECTION [None]
